FAERS Safety Report 5407978-8 (Version None)
Quarter: 2007Q3

REPORT INFORMATION
  Report Type: 
  Country: None (occurrence: None)
  Receive Date: 20070803
  Receipt Date: 20070719
  Transmission Date: 20080115
  Serious: Yes (Hospitalization)
  Sender: FDA-Public Use
  Company Number: 003#1#2007-00134

PATIENT

DRUGS (2)
  1. NEUPRO-PATCH-DOSE-UNKNOWN (ROTIGOTINE) [Suspect]
     Dosage: TRANSDERMAL
     Route: 062
     Dates: end: 20070701
  2. SINEMET [Concomitant]

REACTIONS (1)
  - MYOCARDIAL INFARCTION [None]
